FAERS Safety Report 4717297-0 (Version None)
Quarter: 2005Q3

REPORT INFORMATION
  Report Type: 
  Country: None (occurrence: None)
  Receive Date: 20050719
  Receipt Date: 20050712
  Transmission Date: 20060218
  Serious: Yes (Other)
  Sender: FDA-Public Use
  Company Number: 05-07-1189

PATIENT
  Age: 24 Year
  Sex: Male

DRUGS (7)
  1. METRONIDAZOLE [Suspect]
     Indication: CLOSTRIDIAL INFECTION
     Dosage: 500MG QID ORAL
     Route: 048
  2. TACROLIMUS [Suspect]
     Indication: ORGAN TRANSPLANT
     Dosage: 4MG BID
  3. GANCICLOVIR [Concomitant]
  4. PREDNISONE [Concomitant]
  5. ATENOLOL [Concomitant]
  6. OMEPRAZOLE [Concomitant]
  7. SULFAMETHOXYPYRAZINE/TRIMETHOPRIM [Concomitant]

REACTIONS (8)
  - BACTERIA STOOL IDENTIFIED [None]
  - BLOOD CREATININE INCREASED [None]
  - CLOSTRIDIAL INFECTION [None]
  - CYTOMEGALOVIRUS INFECTION [None]
  - DIARRHOEA [None]
  - DRUG LEVEL INCREASED [None]
  - GASTRITIS [None]
  - URINARY TRACT INFECTION [None]
